FAERS Safety Report 11375597 (Version 3)
Quarter: 2016Q1

REPORT INFORMATION
  Report Type: Spontaneous
  Country: US (occurrence: US)
  Receive Date: 20150813
  Receipt Date: 20160126
  Transmission Date: 20160525
  Serious: Yes (Life-Threatening, Hospitalization, Other)
  Sender: FDA-Public Use
  Company Number: US-BAYER-2015-399280

PATIENT
  Age: 23 Year
  Sex: Female
  Weight: 44.44 kg

DRUGS (4)
  1. PRENATAL [Concomitant]
     Active Substance: VITAMINS
  2. MIRENA [Suspect]
     Active Substance: LEVONORGESTREL
     Indication: CONTRACEPTION
     Dosage: 20 MCG/24HR, CONT
     Route: 015
     Dates: start: 201112, end: 20120921
  3. NORETHINDRONE. [Concomitant]
     Active Substance: NORETHINDRONE
  4. NUVARING [Concomitant]
     Active Substance: ETHINYL ESTRADIOL\ETONOGESTREL

REACTIONS (6)
  - General physical health deterioration [None]
  - Injury [None]
  - Uterine perforation [None]
  - Infection [None]
  - Device issue [None]
  - Abdominal pain [None]

NARRATIVE: CASE EVENT DATE: 201207
